FAERS Safety Report 10396930 (Version 4)
Quarter: 2020Q1

REPORT INFORMATION
  Report Type: Report from Study
  Country: MX (occurrence: MX)
  Receive Date: 20140820
  Receipt Date: 20200130
  Transmission Date: 20200409
  Serious: Yes (Other)
  Sender: FDA-Public Use
  Company Number: PHHY2013MX132075

PATIENT
  Age: 84 Year
  Sex: Female
  Weight: 90 kg

DRUGS (11)
  1. ASPIRIN PROTECT [Concomitant]
     Active Substance: ASPIRIN
     Indication: THROMBOSIS PROPHYLAXIS
     Dosage: 1 DF, QD (10 YEARS AGO)
     Route: 048
  2. CO-DIOVAN [Suspect]
     Active Substance: HYDROCHLOROTHIAZIDE\VALSARTAN
     Dosage: 1 DF (25 MG HYDROCHLOROTHIAZIDE/160MG VALSARTAN), QD (MORE THAN 8 YEARS AGO)
     Route: 048
     Dates: start: 2010
  3. CO-DIOVAN [Suspect]
     Active Substance: HYDROCHLOROTHIAZIDE\VALSARTAN
     Dosage: 1 DF (1 TABLET IN THE MORNING AND 1 AND A HALF TABLET AT NIGHT)
     Route: 048
  4. ENALAPRIL [Concomitant]
     Active Substance: ENALAPRIL
     Indication: HYPERTENSION
     Dosage: 4 DF, QD (STARTED LONG TIME AGO AND STOPPED LONG TIME AGO))
     Route: 048
  5. SERMION [Concomitant]
     Active Substance: NICERGOLINE
     Indication: PRODUCT USED FOR UNKNOWN INDICATION
     Dosage: UNK
     Route: 065
  6. CAPTOPRIL. [Concomitant]
     Active Substance: CAPTOPRIL
     Indication: HYPERTENSION
     Dosage: 2 DF, BID (STARTED LONG TIME AGO AND STOPPED LONG TIME AGO)
     Route: 048
  7. NIMOTOP [Concomitant]
     Active Substance: NIMODIPINE
     Indication: CARDIOVASCULAR DISORDER
     Dosage: 1 DF, QD
     Route: 048
     Dates: start: 2015
  8. CLAUTER [Concomitant]
     Indication: CARDIOVASCULAR DISORDER
     Dosage: 2 DF, QD
     Route: 048
     Dates: start: 2015
  9. OMEPRAZOLE. [Concomitant]
     Active Substance: OMEPRAZOLE
     Indication: DYSPEPSIA
     Dosage: 1 D (20 MG)F, QD (A LONG TIME AGO)
     Route: 048
  10. CO-DIOVAN [Suspect]
     Active Substance: HYDROCHLOROTHIAZIDE\VALSARTAN
     Indication: HYPERTENSION
     Dosage: 2 DF, QD (12.5 MG HYDROCHLOROTHIAZIDE/160MG VALSARTAN) (10 YEARS AGO)
     Route: 048
  11. CO-DIOVAN [Suspect]
     Active Substance: HYDROCHLOROTHIAZIDE\VALSARTAN
     Dosage: 2 DF (25 MG HYDROCHLOROTHIAZIDE/160MG VALSARTAN), QD
     Route: 048

REACTIONS (20)
  - Fall [Unknown]
  - Product prescribing error [Unknown]
  - Visual impairment [Not Recovered/Not Resolved]
  - Gait inability [Not Recovered/Not Resolved]
  - Dyspnoea [Not Recovered/Not Resolved]
  - Vomiting [Not Recovered/Not Resolved]
  - Venous occlusion [Unknown]
  - Spinal pain [Not Recovered/Not Resolved]
  - Cataract [Not Recovered/Not Resolved]
  - Cardiac disorder [Not Recovered/Not Resolved]
  - Oxygen saturation abnormal [Not Recovered/Not Resolved]
  - Kidney infection [Unknown]
  - Headache [Not Recovered/Not Resolved]
  - Inappropriate schedule of product administration [Unknown]
  - Eye pain [Not Recovered/Not Resolved]
  - Carotid artery occlusion [Unknown]
  - Head injury [Unknown]
  - Weight increased [Unknown]
  - Vertigo [Not Recovered/Not Resolved]
  - Dizziness [Not Recovered/Not Resolved]

NARRATIVE: CASE EVENT DATE: 2013
